FAERS Safety Report 10149285 (Version 3)
Quarter: 2014Q3

REPORT INFORMATION
  Report Type: Spontaneous
  Country: US (occurrence: US)
  Receive Date: 20140502
  Receipt Date: 20140905
  Transmission Date: 20150326
  Serious: Yes (Death, Hospitalization, Other)
  Sender: FDA-Public Use
  Company Number: US-PERRIGO-14US004314

PATIENT
  Age: 62 Year
  Sex: Male
  Weight: 136.5 kg

DRUGS (3)
  1. LOPERAMIDE HCL [Suspect]
     Active Substance: LOPERAMIDE HYDROCHLORIDE
     Indication: DIARRHOEA
     Dosage: UNK, PRN
     Route: 048
     Dates: start: 20140412, end: 20140415
  2. GOOD NEIGHBOR PHARMACY ANTI DIARRHEAL [Suspect]
     Active Substance: LOPERAMIDE HYDROCHLORIDE
     Indication: DIARRHOEA
     Dosage: 12 MG, SINGLE
     Route: 048
     Dates: start: 20140415, end: 20140415
  3. GOOD NEIGHBOR PHARMACY ANTI DIARRHEAL [Suspect]
     Active Substance: LOPERAMIDE HYDROCHLORIDE
     Dosage: 4 MG, PRN
     Route: 048
     Dates: start: 20140415, end: 20140420

REACTIONS (11)
  - Hepatic encephalopathy [Fatal]
  - Dyspnoea [Not Recovered/Not Resolved]
  - Multi-organ failure [Fatal]
  - Incorrect drug administration duration [Recovered/Resolved]
  - Burning sensation [Not Recovered/Not Resolved]
  - Hepatic failure [Fatal]
  - Abasia [Not Recovered/Not Resolved]
  - Renal failure acute [Fatal]
  - Incorrect dose administered [Recovered/Resolved]
  - Bacteraemia [Fatal]
  - Pain in extremity [Not Recovered/Not Resolved]

NARRATIVE: CASE EVENT DATE: 20140414
